FAERS Safety Report 5287709-5 (Version None)
Quarter: 2007Q1

REPORT INFORMATION
  Report Type: 
  Country: None (occurrence: None)
  Receive Date: 20070116
  Receipt Date: 20060917
  Transmission Date: 20070707
  Serious: No
  Sender: FDA-Public Use
  Company Number: 2006SP003315

PATIENT
  Age: 49 Year
  Sex: Male
  Weight: 108.8633 kg

DRUGS (10)
  1. LUNESTA [Suspect]
     Indication: INSOMNIA
     Dosage: 3 MG; HS; ORAL
     Route: 048
     Dates: start: 20060916
  2. FORMOTEROL FUMARATE [Concomitant]
  3. EMTRICITABINE [Concomitant]
  4. SUSTIVA [Concomitant]
  5. LASIX [Concomitant]
  6. TIOTROPIUM BROMIDE [Concomitant]
  7. GLUCOVANCE [Concomitant]
  8. MONOPRIL [Concomitant]
  9. LANTUS [Concomitant]
  10. OXYGEN [Concomitant]

REACTIONS (2)
  - DRUG INEFFECTIVE [None]
  - INSOMNIA [None]
